FAERS Safety Report 19259992 (Version 1)
Quarter: 2021Q2

REPORT INFORMATION
  Report Type: Spontaneous
  Country: CA (occurrence: CA)
  Receive Date: 20210514
  Receipt Date: 20210514
  Transmission Date: 20210717
  Serious: Yes (Hospitalization, Other)
  Sender: FDA-Public Use
  Company Number: CA-TEVA-2021-CA-1910882

PATIENT
  Age: 38 Year
  Sex: Male

DRUGS (5)
  1. INFLIXIMAB [Concomitant]
     Active Substance: INFLIXIMAB
     Indication: CROHN^S DISEASE
     Dosage: 400 MG
     Route: 042
     Dates: start: 20210203
  2. PREDNISONE. [Suspect]
     Active Substance: PREDNISONE
     Dosage: UNSPECIFIED INDICATION ON/OFF SINCE 2019
  3. INFLIXIMAB [Concomitant]
     Active Substance: INFLIXIMAB
     Dosage: AT 400 MG, AT 0, 2, 6 WEEKS THEN EVERY 8 WEEKS
     Dates: start: 20210318
  4. PREDNISONE. [Suspect]
     Active Substance: PREDNISONE
     Dosage: FROM 02FEB2021 (1DOSE FORM, DOSAGE WAS UNKNOWN, X 2 MONTHS)
  5. INFLIXIMAB [Concomitant]
     Active Substance: INFLIXIMAB
     Dosage: 10 MG/KG, EVERY 4WEEK
     Dates: start: 20210415

REACTIONS (5)
  - Abdominal pain [Recovered/Resolved]
  - Diarrhoea [Recovered/Resolved]
  - Haematochezia [Recovered/Resolved]
  - Crohn^s disease [Unknown]
  - Weight increased [Unknown]

NARRATIVE: CASE EVENT DATE: 2021
